FAERS Safety Report 10202866 (Version 1)
Quarter: 2014Q2

REPORT INFORMATION
  Report Type: Spontaneous
  Country: US (occurrence: US)
  Receive Date: 20140522
  Receipt Date: 20140522
  Transmission Date: 20141212
  Serious: No
  Sender: FDA-Public Use
  Company Number: US-SA-2014SA039972

PATIENT
  Age: 53 Year
  Sex: Female

DRUGS (3)
  1. LANTUS SOLOSTAR [Suspect]
     Indication: TYPE 2 DIABETES MELLITUS
     Dosage: DOSE: BETWEEN30-32 UNITS?STRENGTH: 100 IU/ML
     Route: 065
  2. NOVOLOG [Suspect]
     Indication: DIABETES MELLITUS
     Route: 065
  3. SOLOSTAR [Concomitant]

REACTIONS (6)
  - Heart rate increased [Unknown]
  - Vitreous floaters [Unknown]
  - Feeling abnormal [Unknown]
  - Burning sensation [Unknown]
  - Blood glucose decreased [Not Recovered/Not Resolved]
  - Product quality issue [Unknown]
